FAERS Safety Report 13628565 (Version 2)
Quarter: 2017Q2

REPORT INFORMATION
  Report Type: Spontaneous
  Country: US (occurrence: US)
  Receive Date: 20170607
  Receipt Date: 20170613
  Transmission Date: 20170830
  Serious: Yes (Hospitalization, Other)
  Sender: FDA-Public Use
  Company Number: US-ASTRAZENECA-2017SE59321

PATIENT
  Age: 60 Year
  Sex: Female
  Weight: 57.6 kg

DRUGS (9)
  1. OMEPRAZOLE. [Suspect]
     Active Substance: OMEPRAZOLE
     Indication: ABDOMINAL DISCOMFORT
     Route: 048
     Dates: start: 2007
  2. MORPHINE SULFATE. [Concomitant]
     Active Substance: MORPHINE SULFATE
     Indication: PAIN
     Route: 048
     Dates: start: 2013
  3. ESTRADIOL. [Concomitant]
     Active Substance: ESTRADIOL
     Indication: HORMONE REPLACEMENT THERAPY
     Route: 048
  4. SEROQUEL [Suspect]
     Active Substance: QUETIAPINE FUMARATE
     Indication: PANIC ATTACK
     Route: 048
  5. CREON [Concomitant]
     Active Substance: PANCRELIPASE AMYLASE\PANCRELIPASE LIPASE\PANCRELIPASE PROTEASE
     Indication: AMINO ACID CATABOLISM DISORDER
     Dosage: 12000 BEFORE MEALS
     Route: 048
     Dates: start: 2007
  6. SEROQUEL [Suspect]
     Active Substance: QUETIAPINE FUMARATE
     Indication: PANIC ATTACK
     Route: 048
     Dates: start: 2015
  7. SYNTHROID [Concomitant]
     Active Substance: LEVOTHYROXINE SODIUM
     Indication: HYPOTHYROIDISM
     Route: 048
     Dates: start: 1990
  8. VALIUM [Concomitant]
     Active Substance: DIAZEPAM
     Dates: start: 2000
  9. SEROQUEL [Suspect]
     Active Substance: QUETIAPINE FUMARATE
     Indication: PANIC ATTACK
     Route: 048
     Dates: start: 200001

REACTIONS (33)
  - Cardiac disorder [Unknown]
  - Malaise [Unknown]
  - Blindness [Unknown]
  - Blood pressure decreased [Unknown]
  - Blood pressure increased [Unknown]
  - Crying [Unknown]
  - Catatonia [Unknown]
  - Nightmare [Unknown]
  - Pain [Unknown]
  - Anxiety [Unknown]
  - Dehydration [Unknown]
  - Heart rate increased [Unknown]
  - Somnolence [Unknown]
  - Nephrolithiasis [Unknown]
  - Abdominal adhesions [Unknown]
  - Large intestine perforation [Recovered/Resolved]
  - Vomiting [Recovered/Resolved]
  - Abdominal discomfort [Unknown]
  - Drug withdrawal syndrome [Unknown]
  - Pancreatitis [Unknown]
  - Speech disorder [Unknown]
  - Hallucination, visual [Unknown]
  - Intestinal obstruction [Unknown]
  - Abdominal pain [Recovered/Resolved]
  - Pyrexia [Recovered/Resolved]
  - Amnesia [Unknown]
  - Insomnia [Unknown]
  - Product use issue [Unknown]
  - Off label use [Unknown]
  - Suicidal ideation [Unknown]
  - Muscle atrophy [Unknown]
  - Fatigue [Unknown]
  - Asthenia [Unknown]

NARRATIVE: CASE EVENT DATE: 2007
